FAERS Safety Report 10614302 (Version 1)
Quarter: 2014Q4

REPORT INFORMATION
  Report Type: Spontaneous
  Country: CH (occurrence: CH)
  Receive Date: 20141128
  Receipt Date: 20141128
  Transmission Date: 20150529
  Serious: Yes (Death, Other)
  Sender: FDA-Public Use
  Company Number: PHHY2014CH154016

PATIENT
  Age: 65 Year
  Sex: Female

DRUGS (3)
  1. AFINITOR [Suspect]
     Active Substance: EVEROLIMUS
     Indication: BREAST CANCER
     Dosage: 10 MG
     Route: 065
     Dates: start: 20120901
  2. AROMASIN [Suspect]
     Active Substance: EXEMESTANE
     Indication: BREAST CANCER
     Dosage: UNK
     Route: 065
     Dates: start: 20120901, end: 201305
  3. AFINITOR [Suspect]
     Active Substance: EVEROLIMUS
     Dosage: 5 MG, QD
     Route: 065
     Dates: start: 201301, end: 201305

REACTIONS (12)
  - Lymphadenopathy [Unknown]
  - Lymphoedema [Unknown]
  - Blood cholesterol increased [Unknown]
  - Cystitis [Unknown]
  - Bone pain [Unknown]
  - Death [Fatal]
  - Necrosis [Unknown]
  - Tumour marker increased [Unknown]
  - Fatigue [Unknown]
  - Malignant neoplasm progression [Unknown]
  - Hepatitis [Unknown]
  - Hepatic lesion [Unknown]

NARRATIVE: CASE EVENT DATE: 201211
